FAERS Safety Report 5901862-9 (Version None)
Quarter: 2008Q3

REPORT INFORMATION
  Report Type: 
  Country: None (occurrence: None)
  Receive Date: 20080929
  Receipt Date: 20080221
  Transmission Date: 20090109
  Serious: Yes (Disabling)
  Sender: FDA-Public Use
  Company Number: JP-BAYER-200810157BYL

PATIENT
  Age: 59 Year
  Sex: Female
  Weight: 44 kg

DRUGS (3)
  1. FLUDARA [Suspect]
     Indication: CHRONIC LYMPHOCYTIC LEUKAEMIA
     Dosage: AS USED: 35 MG  UNIT DOSE: 50 MG
     Route: 042
     Dates: start: 20070818, end: 20070822
  2. FLUDARA [Suspect]
     Dosage: AS USED: 35 MG  UNIT DOSE: 50 MG
     Route: 042
     Dates: start: 20070910, end: 20070914
  3. FLUDARA [Suspect]
     Dosage: AS USED: 35 MG  UNIT DOSE: 50 MG
     Route: 042
     Dates: start: 20071001, end: 20071005

REACTIONS (3)
  - APLASIA PURE RED CELL [None]
  - BONE MARROW FAILURE [None]
  - HAEMOGLOBIN DECREASED [None]
